FAERS Safety Report 8079698-5 (Version None)
Quarter: 2012Q1

REPORT INFORMATION
  Report Type: 
  Country: None (occurrence: None)
  Receive Date: 20120128
  Receipt Date: 20110810
  Transmission Date: 20120608
  Serious: No
  Sender: FDA-Public Use
  Company Number: US-ABBOTT-11P-163-0845319-00

PATIENT
  Age: 61 Year
  Sex: Female

DRUGS (6)
  1. FLECAINIDE ACETATE [Concomitant]
     Indication: ATRIAL FIBRILLATION
  2. COUMADIN [Concomitant]
     Indication: HEART VALVE REPLACEMENT
     Dosage: 3 AND 4 MG ALTERNATING DAYS
  3. HUMIRA [Suspect]
     Indication: PSORIATIC ARTHROPATHY
     Dates: start: 20110401
  4. METHOTREXATE [Concomitant]
     Indication: PSORIATIC ARTHROPATHY
  5. SIMVASTATIN [Concomitant]
     Indication: BLOOD CHOLESTEROL INCREASED
  6. PAXIL [Concomitant]
     Indication: ANXIETY

REACTIONS (3)
  - FEELING HOT [None]
  - CHILLS [None]
  - ARTHRALGIA [None]
